FAERS Safety Report 6822077-6 (Version None)
Quarter: 2010Q3

REPORT INFORMATION
  Report Type: 
  Country: None (occurrence: None)
  Receive Date: 20100706
  Receipt Date: 20100706
  Transmission Date: 20110219
  Serious: Yes (Life-Threatening)
  Sender: FDA-Public Use
  Company Number: None

PATIENT
  Age: 86 Year
  Sex: Male

DRUGS (2)
  1. HALOPERIDOL [Suspect]
     Indication: ABNORMAL BEHAVIOUR
     Dosage: 2 MG ONCE PO
     Route: 048
     Dates: start: 20100501, end: 20100501
  2. HALOPERIDOL [Suspect]
     Indication: DEMENTIA
     Dosage: 2 MG ONCE PO
     Route: 048
     Dates: start: 20100501, end: 20100501

REACTIONS (3)
  - AGITATION [None]
  - MENTAL STATUS CHANGES [None]
  - UNRESPONSIVE TO STIMULI [None]
